FAERS Safety Report 13503087 (Version 1)
Quarter: 2017Q2

REPORT INFORMATION
  Report Type: Spontaneous
  Country: US (occurrence: US)
  Receive Date: 20170501
  Receipt Date: 20170501
  Transmission Date: 20170830
  Serious: No
  Sender: FDA-Public Use
  Company Number: None

PATIENT
  Age: 59 Year
  Sex: Female

DRUGS (1)
  1. EPCLUSA [Suspect]
     Active Substance: SOFOSBUVIR\VELPATASVIR

REACTIONS (8)
  - Depression [None]
  - Feeling of body temperature change [None]
  - Insomnia [None]
  - Diarrhoea [None]
  - Fatigue [None]
  - Anxiety [None]
  - Chills [None]
  - Constipation [None]

NARRATIVE: CASE EVENT DATE: 20170424
